FAERS Safety Report 12648476 (Version 1)
Quarter: 2016Q3

REPORT INFORMATION
  Report Type: Spontaneous
  Country: FR (occurrence: FR)
  Receive Date: 20160812
  Receipt Date: 20160812
  Transmission Date: 20161109
  Serious: Yes (Hospitalization)
  Sender: FDA-Public Use
  Company Number: FR-TEVA-684390ROM

PATIENT
  Age: 88 Year
  Sex: Female

DRUGS (11)
  1. KARDEGIC [Concomitant]
     Active Substance: ASPIRIN LYSINE
     Dosage: 75 MILLIGRAM DAILY;
     Route: 065
  2. FUROSEMIDE 20 MG TABLET [Suspect]
     Active Substance: FUROSEMIDE
     Indication: HYPERTENSION
     Dosage: 10 MILLIGRAM DAILY; 20 MG TABLET; 1/2 TABLET IN THE MORNING
     Route: 048
     Dates: end: 201508
  3. ACTONEL [Suspect]
     Active Substance: RISEDRONATE SODIUM
     Dosage: .0667 DOSAGE FORMS DAILY;
     Route: 048
     Dates: end: 201508
  4. LIPANTHYL 67 MICRO CAPSULE [Suspect]
     Active Substance: FENOFIBRATE
     Dosage: 67 MILLIGRAM DAILY; 67 MG IN THE EVENINGS
     Route: 048
     Dates: end: 201508
  5. UVEDOSE [Concomitant]
     Active Substance: CHOLECALCIFEROL
     Dosage: 1 VIAL/MONTH
     Route: 065
  6. AMIODARONE [Concomitant]
     Active Substance: AMIODARONE
     Dosage: 1 MORNING 5 DAYS/7 EXCEPT SATURADYS AND SUNDAYS
     Route: 065
  7. RILMENIDINE [Concomitant]
     Active Substance: RILMENIDINE
     Dosage: 1 MORNINGS AND EVENINGS
     Route: 065
  8. MIRTAZAPINE 15 MG [Concomitant]
     Active Substance: MIRTAZAPINE
     Dosage: 15 MILLIGRAM DAILY; 15 MG IN THE MORNING
  9. COAPROVEL 300/25 MG COATED TABLET [Suspect]
     Active Substance: HYDROCHLOROTHIAZIDE\IRBESARTAN
     Indication: HYPERTENSION
     Route: 048
     Dates: end: 201508
  10. LEVOTHYROX 50 [Concomitant]
     Active Substance: LEVOTHYROXINE
     Indication: HYPOTHYROIDISM
     Dosage: 50 MICROGRAM DAILY; 50 MICROGRAMS  IN THE MORNINGS BEFORE FOOD
     Route: 065
  11. KALEORID 600 [Concomitant]
     Dosage: 600 MG IN THE MORNING AND EVENINGS
     Route: 065

REACTIONS (1)
  - Acute kidney injury [Recovered/Resolved]

NARRATIVE: CASE EVENT DATE: 201508
